FAERS Safety Report 6697416-X (Version None)
Quarter: 2010Q2

REPORT INFORMATION
  Report Type: 
  Country: None (occurrence: None)
  Receive Date: 20100426
  Receipt Date: 20100203
  Transmission Date: 20101027
  Serious: Yes (Hospitalization)
  Sender: FDA-Public Use
  Company Number: CHPA2010IT02646

PATIENT
  Sex: Female

DRUGS (1)
  1. ACETAMINOPHEN (PARACETAMOL),ACETYLSAL ACID,CAFFEINE CITRATE (NCH) [Suspect]
     Dosage: UNK, UNK

REACTIONS (2)
  - GENERALISED ERYTHEMA [None]
  - PRURITUS GENERALISED [None]
